FAERS Safety Report 15395300 (Version 1)
Quarter: 2018Q3

REPORT INFORMATION
  Report Type: Spontaneous
  Country: US (occurrence: US)
  Receive Date: 20180918
  Receipt Date: 20180918
  Transmission Date: 20181010
  Serious: No
  Sender: FDA-Public Use
  Company Number: US-PFIZER INC-2018374148

PATIENT
  Age: 44 Year
  Sex: Female
  Weight: 113 kg

DRUGS (1)
  1. CHANTIX [Suspect]
     Active Substance: VARENICLINE TARTRATE
     Dosage: 0.5 MG, DAILY (ONE HALF TAB IN THE MORNING FOR 7 DAYS)

REACTIONS (1)
  - Drug ineffective [Unknown]
